FAERS Safety Report 19890852 (Version 3)
Quarter: 2024Q1

REPORT INFORMATION
  Report Type: Spontaneous
  Country: US (occurrence: US)
  Receive Date: 20210928
  Receipt Date: 20240107
  Transmission Date: 20240410
  Serious: No
  Sender: FDA-Public Use
  Company Number: US-GLAXOSMITHKLINE-US2021202137

PATIENT
  Sex: Female

DRUGS (1)
  1. FLOVENT HFA [Suspect]
     Active Substance: FLUTICASONE PROPIONATE
     Indication: Asthma
     Dosage: 2 PUFF(S), BID, 220 MCG INH 12 GM

REACTIONS (3)
  - Asthma [Recovering/Resolving]
  - Ankle fracture [Unknown]
  - Influenza [Unknown]

NARRATIVE: CASE EVENT DATE: 20130101
